APPROVED DRUG PRODUCT: IDARUBICIN HYDROCHLORIDE
Active Ingredient: IDARUBICIN HYDROCHLORIDE
Strength: 5MG/5ML (1MG/ML)
Dosage Form/Route: SOLUTION;INTRAVENOUS
Application: A091293 | Product #001
Applicant: SANDOZ INC
Approved: Mar 29, 2011 | RLD: No | RS: No | Type: DISCN